FAERS Safety Report 6011674-6 (Version None)
Quarter: 2008Q4

REPORT INFORMATION
  Report Type: 
  Country: None (occurrence: None)
  Receive Date: 20081218
  Receipt Date: 19870226
  Transmission Date: 20090506
  Serious: Yes (Death, Hospitalization, Other)
  Sender: FDA-Public Use
  Company Number: IT-ROCHE-870150452001

PATIENT
  Age: 56 Year
  Sex: Male

DRUGS (1)
  1. INTERFERON ALFA-2A [Suspect]
     Indication: MULTIPLE MYELOMA
     Dosage: TDD REPORTED AS 6 MU
     Route: 058
     Dates: start: 19860412, end: 19860515

REACTIONS (4)
  - ANAEMIA [None]
  - DISEASE PROGRESSION [None]
  - LEUKOPENIA [None]
  - THROMBOCYTOPENIA [None]
